FAERS Safety Report 9228959 (Version 1)
Quarter: 2013Q2

REPORT INFORMATION
  Report Type: Spontaneous
  Country: US (occurrence: US)
  Receive Date: 20130412
  Receipt Date: 20130412
  Transmission Date: 20140414
  Serious: Yes (Other)
  Sender: FDA-Public Use
  Company Number: US-009507513-1304USA005404

PATIENT
  Sex: Female

DRUGS (2)
  1. FOSAMAX [Suspect]
     Dosage: 70 MG, ONCE WEEKLY
     Route: 048
  2. AROMASIN [Concomitant]

REACTIONS (1)
  - Breast cancer [Unknown]
